FAERS Safety Report 4642752-1 (Version None)
Quarter: 2005Q2

REPORT INFORMATION
  Report Type: 
  Country: None (occurrence: None)
  Receive Date: 20050422
  Receipt Date: 20050420
  Transmission Date: 20051028
  Serious: Yes (Hospitalization)
  Sender: FDA-Public Use
  Company Number: PHBS2005TR05699

PATIENT
  Age: 65 Year
  Sex: Male

DRUGS (6)
  1. THIORIDAZINE HCL [Suspect]
     Indication: SCHIZOPHRENIA
  2. THIORIDAZINE HCL [Suspect]
     Dosage: UNK, ONCE/SINGLE
     Route: 065
  3. PIMOZIDE [Concomitant]
     Dosage: 8 MG/D
     Route: 065
  4. RISPERIDONE [Concomitant]
     Dosage: 6 MG/D
     Route: 065
  5. RISPERIDONE [Concomitant]
     Dosage: 12 MG/D
     Route: 065
  6. RISPERIDONE [Concomitant]
     Dosage: 8 MG/D
     Route: 065

REACTIONS (4)
  - DRUG EFFECT DECREASED [None]
  - OVERDOSE [None]
  - PSYCHOTIC DISORDER [None]
  - SUICIDE ATTEMPT [None]
